FAERS Safety Report 17844693 (Version 3)
Quarter: 2020Q3

REPORT INFORMATION
  Report Type: Spontaneous
  Country: US (occurrence: US)
  Receive Date: 20200601
  Receipt Date: 20200717
  Transmission Date: 20201103
  Serious: Yes (Other)
  Sender: FDA-Public Use
  Company Number: US-GLAXOSMITHKLINE-US2020AMR086476

PATIENT
  Sex: Female

DRUGS (2)
  1. ZEJULA [Suspect]
     Active Substance: NIRAPARIB
     Dosage: 300 MG, QD
  2. ZEJULA [Suspect]
     Active Substance: NIRAPARIB
     Indication: OVARIAN CANCER
     Dosage: 300 MG, DAILY
     Dates: start: 20200507

REACTIONS (7)
  - Atrial fibrillation [Unknown]
  - Myalgia [Unknown]
  - Chest wall cyst [Unknown]
  - Rash pruritic [Unknown]
  - Rash [Unknown]
  - Breast cyst [Unknown]
  - Secretion discharge [Unknown]
